FAERS Safety Report 4589470-6 (Version None)
Quarter: 2005Q1

REPORT INFORMATION
  Report Type: 
  Country: None (occurrence: None)
  Receive Date: 20050216
  Receipt Date: 20050207
  Transmission Date: 20050727
  Serious: Yes (Hospitalization)
  Sender: FDA-Public Use
  Company Number: TPA2005A00016

PATIENT
  Age: 77 Year
  Sex: Male

DRUGS (1)
  1. ACTOS [Suspect]
     Indication: DIABETES MELLITUS
     Dosage: SEE IMAGE
     Route: 048

REACTIONS (24)
  - AORTIC ATHEROSCLEROSIS [None]
  - ATELECTASIS [None]
  - BLOOD CREATININE INCREASED [None]
  - BRADYCARDIA [None]
  - BRONCHITIS [None]
  - CARDIAC FAILURE [None]
  - DILATATION ATRIAL [None]
  - DYSPNOEA PAROXYSMAL NOCTURNAL [None]
  - EMPHYSEMA [None]
  - LUNG INFILTRATION [None]
  - MITRAL VALVE INCOMPETENCE [None]
  - OEDEMA PERIPHERAL [None]
  - ORTHOPNOEA [None]
  - OXYGEN SATURATION DECREASED [None]
  - PERICARDIAL EFFUSION [None]
  - PITTING OEDEMA [None]
  - POLYDIPSIA [None]
  - POLYURIA [None]
  - PRODUCTIVE COUGH [None]
  - PULMONARY OEDEMA [None]
  - RALES [None]
  - RIGHT VENTRICULAR SYSTOLIC PRESSURE INCREASED [None]
  - TRICUSPID VALVE INCOMPETENCE [None]
  - WEIGHT INCREASED [None]
